FAERS Safety Report 7914275 (Version 2)
Quarter: 2012Q4

REPORT INFORMATION
  Report Type: Spontaneous
  Country: US (occurrence: None)
  Receive Date: 20110405
  Receipt Date: 20121009
  Transmission Date: 20130627
  Serious: Yes (Other)
  Sender: FDA-Public Use
  Company Number: 2011MA002709

PATIENT
  Sex: Male

DRUGS (15)
  1. METOCLOPRAMIDE [Suspect]
     Indication: DRUG USE FOR UNKNOWN INDICATION
     Dosage: PO
     Route: 048
     Dates: start: 20050415, end: 20080620
  2. ATENOLOL [Concomitant]
  3. CEPHALEXIN [Concomitant]
  4. CITALOPRAM [Concomitant]
  5. CLONAZEPAM [Concomitant]
  6. DIPYRIDAMOLE [Concomitant]
  7. HYDROCODONE [Concomitant]
  8. LEVAQUIN [Concomitant]
  9. LIPITOR [Concomitant]
  10. LISINOPRIL [Concomitant]
  11. NEXIUM [Concomitant]
  12. NORCO [Concomitant]
  13. PREDNISONE [Concomitant]
  14. SIMVASTATIN [Concomitant]
  15. ZALEPLON [Concomitant]

REACTIONS (9)
  - Tardive dyskinesia [None]
  - Dystonia [None]
  - Akathisia [None]
  - Extrapyramidal disorder [None]
  - Tremor [None]
  - Emotional disorder [None]
  - Economic problem [None]
  - Dyskinesia [None]
  - Partner stress [None]
